FAERS Safety Report 10599336 (Version 1)
Quarter: 2014Q4

REPORT INFORMATION
  Report Type: Spontaneous
  Country: DE (occurrence: DE)
  Receive Date: 20141121
  Receipt Date: 20141121
  Transmission Date: 20150529
  Serious: Yes (Hospitalization)
  Sender: FDA-Public Use
  Company Number: DE-ABBVIE-14P-062-1311122-00

PATIENT
  Age: 31 Year
  Sex: Female

DRUGS (2)
  1. VENLAFAXINE [Suspect]
     Active Substance: VENLAFAXINE HYDROCHLORIDE
     Indication: BIPOLAR DISORDER
     Dosage: UNKNOWN FORM AND FREQUENCY
     Route: 048
     Dates: start: 20140201, end: 20140315
  2. VALPROATE SODIUM. [Suspect]
     Active Substance: VALPROATE SODIUM
     Indication: BIPOLAR DISORDER
     Dosage: UNKNOWN FORM AND FREQUENCY
     Route: 048
     Dates: start: 20140201, end: 20140315

REACTIONS (1)
  - Adverse event [Unknown]
